FAERS Safety Report 6902619-2 (Version None)
Quarter: 2010Q3

REPORT INFORMATION
  Report Type: 
  Country: None (occurrence: None)
  Receive Date: 20100803
  Receipt Date: 20080908
  Transmission Date: 20110219
  Serious: No
  Sender: FDA-Public Use
  Company Number: US-PFIZER INC-2008028961

PATIENT
  Sex: Female
  Weight: 118.84 kg

DRUGS (10)
  1. LYRICA [Suspect]
     Indication: AUTOIMMUNE THYROIDITIS
     Route: 048
     Dates: start: 20070803
  2. LYRICA [Suspect]
     Indication: ARTHRITIS
  3. LYRICA [Suspect]
     Indication: FIBROMYALGIA
  4. CITALOPRAM [Concomitant]
  5. THYROID TAB [Concomitant]
  6. NORFLEX [Concomitant]
  7. IMITREX [Concomitant]
  8. PREDNISONE [Concomitant]
  9. CLONAZEPAM [Concomitant]
  10. ALL OTHER THERAPEUTIC PRODUCTS [Concomitant]

REACTIONS (2)
  - MYOPIA [None]
  - OEDEMA PERIPHERAL [None]
